FAERS Safety Report 15545826 (Version 1)
Quarter: 2018Q4

REPORT INFORMATION
  Report Type: Spontaneous
  Country: US (occurrence: US)
  Receive Date: 20181024
  Receipt Date: 20181024
  Transmission Date: 20190205
  Serious: No
  Sender: FDA-Public Use
  Company Number: US-SA-2018SA293369

PATIENT
  Sex: Female

DRUGS (1)
  1. PRALUENT [Suspect]
     Active Substance: ALIROCUMAB
     Indication: PSORIASIS
     Dosage: 75 MG, QOW
     Route: 058
     Dates: start: 20180331

REACTIONS (4)
  - Stress [Unknown]
  - Psoriasis [Unknown]
  - Product use in unapproved indication [Unknown]
  - Product use issue [Unknown]
